FAERS Safety Report 14443757 (Version 1)
Quarter: 2018Q1

REPORT INFORMATION
  Report Type: Spontaneous
  Country: US (occurrence: US)
  Receive Date: 20180125
  Receipt Date: 20180125
  Transmission Date: 20180509
  Serious: Yes (Death)
  Sender: FDA-Public Use
  Company Number: None

PATIENT
  Age: 39 Year
  Sex: Male

DRUGS (1)
  1. SUTENT [Suspect]
     Active Substance: SUNITINIB MALATE
     Indication: RENAL CANCER
     Dosage: 1 CAPSULE DAILY FOR 4 WEEKS ON THEN 2 WEEKS OFF  BY MOUTH
     Route: 048
     Dates: start: 20171103, end: 20171228

REACTIONS (1)
  - Death [None]

NARRATIVE: CASE EVENT DATE: 20171227
